FAERS Safety Report 7377416-7 (Version None)
Quarter: 2011Q1

REPORT INFORMATION
  Report Type: 
  Country: None (occurrence: None)
  Receive Date: 20110316
  Receipt Date: 20110304
  Transmission Date: 20110831
  Serious: Yes (Hospitalization, Other)
  Sender: FDA-Public Use
  Company Number: 028819

PATIENT
  Sex: Female
  Weight: 59 kg

DRUGS (4)
  1. DIPHENHYDRAMINE HYDROCHLORIDE [Concomitant]
  2. CIMZIA [Suspect]
     Indication: CROHN'S DISEASE
     Dosage: (1 SHOT EVERY OTHER WEEK SUBCUTANEOUS)
     Route: 058
     Dates: start: 20090101
  3. PROCHLORPERAZINE TAB [Suspect]
     Indication: MIGRAINE
     Dosage: (10 MG PRN INTRAVENOUS (NOT OTHERWISE SPECIFIED))
     Route: 042
     Dates: start: 20110225
  4. VITAMINS NOS [Concomitant]

REACTIONS (11)
  - CROHN'S DISEASE [None]
  - CONVULSION [None]
  - ABDOMINAL PAIN UPPER [None]
  - FEELING ABNORMAL [None]
  - BIOPSY LIVER [None]
  - GASTROINTESTINAL TRACT IRRITATION [None]
  - HEADACHE [None]
  - ABDOMINAL DISCOMFORT [None]
  - DYSKINESIA [None]
  - SHORT-BOWEL SYNDROME [None]
  - CONDITION AGGRAVATED [None]
